FAERS Safety Report 5563649-9 (Version None)
Quarter: 2007Q4

REPORT INFORMATION
  Report Type: 
  Country: None (occurrence: None)
  Receive Date: 20071214
  Receipt Date: 20071214
  Transmission Date: 20080405
  Serious: No
  Sender: FDA-Public Use
  Company Number: None

PATIENT
  Sex: Female
  Weight: 81.6475 kg

DRUGS (1)
  1. REQUIP [Suspect]
     Indication: RESTLESS LEGS SYNDROME
     Dosage: 1MG HS PO WHEN IT 1ST CAME OUT
     Route: 048
     Dates: start: 20070601

REACTIONS (3)
  - BIPOLAR DISORDER [None]
  - ECONOMIC PROBLEM [None]
  - RASH [None]
